FAERS Safety Report 6918421-1 (Version None)
Quarter: 2010Q3

REPORT INFORMATION
  Report Type: 
  Country: None (occurrence: None)
  Receive Date: 20100811
  Receipt Date: 20100804
  Transmission Date: 20110219
  Serious: No
  Sender: FDA-Public Use
  Company Number: US-BIOGENIDEC-2010BI027270

PATIENT
  Age: 56 Year
  Sex: Male

DRUGS (4)
  1. TYSABRI [Suspect]
     Indication: MULTIPLE SCLEROSIS
     Route: 042
     Dates: start: 20041222, end: 20050201
  2. TYSABRI [Suspect]
     Route: 042
     Dates: start: 20061214, end: 20071012
  3. TYSABRI [Suspect]
     Route: 042
     Dates: start: 20081212
  4. AVONEX [Concomitant]
     Indication: MULTIPLE SCLEROSIS
     Route: 030
     Dates: start: 20050228

REACTIONS (2)
  - GAIT DISTURBANCE [None]
  - RENAL CYST [None]
